FAERS Safety Report 7194829-7 (Version None)
Quarter: 2010Q4

REPORT INFORMATION
  Report Type: 
  Country: None (occurrence: None)
  Receive Date: 20101223
  Receipt Date: 20101215
  Transmission Date: 20110411
  Serious: Yes (Other)
  Sender: FDA-Public Use
  Company Number: HK-GILEAD-2010-0034442

PATIENT
  Sex: Female
  Weight: 48.6 kg

DRUGS (2)
  1. TENOFOVIR DISOPROXIL FUMARATE [Suspect]
     Indication: HEPATITIS B
     Route: 048
     Dates: start: 20080305, end: 20101210
  2. EMTRICITABINE [Suspect]
     Indication: HEPATITIS B
     Route: 048
     Dates: start: 20080305, end: 20101210

REACTIONS (1)
  - ABORTION SPONTANEOUS [None]
